FAERS Safety Report 8257047-7 (Version None)
Quarter: 2012Q2

REPORT INFORMATION
  Report Type: 
  Country: None (occurrence: None)
  Receive Date: 20120403
  Receipt Date: 20120329
  Transmission Date: 20120825
  Serious: No
  Sender: FDA-Public Use
  Company Number: KR-GLAXOSMITHKLINE-B0781470A

PATIENT
  Age: 16 Year
  Sex: Male

DRUGS (1)
  1. DUAC [Suspect]
     Indication: ACNE
     Route: 065
     Dates: start: 20120210

REACTIONS (3)
  - PRURITUS [None]
  - RASH [None]
  - SKIN EXFOLIATION [None]
